FAERS Safety Report 9705698 (Version 2)
Quarter: 2013Q4

REPORT INFORMATION
  Report Type: Spontaneous
  Country: US (occurrence: US)
  Receive Date: 20131122
  Receipt Date: 20131122
  Transmission Date: 20140711
  Serious: No
  Sender: FDA-Public Use
  Company Number: US-GILEAD-2008-0017238

PATIENT
  Sex: Female
  Weight: 171 kg

DRUGS (5)
  1. LETAIRIS [Suspect]
     Indication: PULMONARY ARTERIAL HYPERTENSION
     Route: 048
     Dates: start: 20080522
  2. OXYGEN [Concomitant]
     Dosage: AS DIRECTED
     Route: 055
  3. LASIX [Concomitant]
     Dosage: AS DIRECTED
     Route: 048
  4. ADVAIR [Concomitant]
     Dosage: AS DIRECTED
     Route: 055
  5. FLOVENT [Concomitant]
     Dosage: AS DIRECTED
     Route: 055

REACTIONS (1)
  - Hepatic enzyme increased [None]
